FAERS Safety Report 7802596-6 (Version None)
Quarter: 2011Q4

REPORT INFORMATION
  Report Type: 
  Country: None (occurrence: None)
  Receive Date: 20111007
  Receipt Date: 20110927
  Transmission Date: 20120403
  Serious: Yes (Hospitalization, Other)
  Sender: FDA-Public Use
  Company Number: US-BAYER-2011-037614

PATIENT
  Age: 26 Year
  Sex: Female
  Weight: 86 kg

DRUGS (21)
  1. ZYRTEC [Concomitant]
     Dosage: 10 MG, UNK
     Route: 048
     Dates: start: 20060531
  2. VICODIN [Concomitant]
  3. YASMIN [Suspect]
     Dosage: UNK
     Route: 048
     Dates: start: 20050101, end: 20061101
  4. TOPAMAX [Concomitant]
  5. IV FLUIDS [Concomitant]
  6. NAPROXEN [Concomitant]
     Dosage: 500 MG, UNK
     Route: 048
     Dates: start: 20050515
  7. RELAFEN [Concomitant]
     Dosage: 750 MG, UNK
     Route: 048
     Dates: start: 20060617
  8. DILAUDID [Concomitant]
     Dosage: 2 MG, UNK
     Route: 048
     Dates: start: 20060601
  9. DILAUDID [Concomitant]
     Dosage: 2 MG, UNK
     Route: 048
     Dates: start: 20060613
  10. PHENERGAN HCL [Concomitant]
  11. HYDROCODONE BITARTRATE [Concomitant]
     Dosage: 7.5 / 750 TAB
     Route: 048
     Dates: start: 20060404
  12. PROMETHAZINE W/ CODEINE [Concomitant]
     Dosage: UNK
     Dates: start: 20060906
  13. NAPROXEN [Concomitant]
     Dosage: 500 MG, UNK
     Route: 048
     Dates: start: 20060404
  14. COMPRO [Concomitant]
     Dosage: 25 MG, UNK
     Route: 054
     Dates: start: 20060613
  15. TIZANIDINE HYDROCHLORIDE [Concomitant]
     Dosage: 4 MG, UNK
     Route: 048
     Dates: start: 20060617
  16. ALBUTEROL [Concomitant]
  17. PERCOCET [Concomitant]
  18. SYNTHROID [Concomitant]
     Indication: HYPOTHYROIDISM
     Dosage: 50 MCG
     Route: 048
     Dates: start: 20060331, end: 20061006
  19. PROMETHAZINE W/ CODEINE [Concomitant]
     Dosage: UNK
     Dates: start: 20060519
  20. OXYCODONE HCL AND ACETAMINOPHEN [Concomitant]
     Dosage: 10/325 MG
     Route: 048
     Dates: start: 20060623
  21. ZANAFLEX [Concomitant]

REACTIONS (9)
  - ORGAN FAILURE [None]
  - CHOLECYSTITIS CHRONIC [None]
  - PAIN [None]
  - GENERAL PHYSICAL HEALTH DETERIORATION [None]
  - CHOLECYSTECTOMY [None]
  - ANXIETY [None]
  - EMOTIONAL DISTRESS [None]
  - ANHEDONIA [None]
  - INJURY [None]
